FAERS Safety Report 4726749-9 (Version None)
Quarter: 2005Q3

REPORT INFORMATION
  Report Type: 
  Country: None (occurrence: None)
  Receive Date: 20050725
  Receipt Date: 20050419
  Transmission Date: 20060218
  Serious: No
  Sender: FDA-Public Use
  Company Number: USA050496097

PATIENT
  Age: 28 Year
  Sex: Female

DRUGS (5)
  1. STRATTERA [Suspect]
     Indication: ATTENTION DEFICIT/HYPERACTIVITY DISORDER
     Dosage: 25 MG DAY
     Dates: start: 20050412
  2. ABILIFY [Concomitant]
  3. TRAZODONE HCL [Concomitant]
  4. ASTHMA MEDICATIONS [Concomitant]
  5. ALLERGY MEDICATIONS [Concomitant]

REACTIONS (4)
  - CONTUSION [None]
  - ERYTHEMA [None]
  - MOOD SWINGS [None]
  - SKIN EXFOLIATION [None]
